FAERS Safety Report 8844170 (Version 2)
Quarter: 2012Q4

REPORT INFORMATION
  Report Type: 
  Country: JP (occurrence: JP)
  Receive Date: 20121016
  Receipt Date: 20121023
  Transmission Date: 20130627
  Serious: Yes (Death, Other)
  Sender: FDA-Public Use
  Company Number: JP-ASTELLAS-2012JP009705

PATIENT
  Age: 67 Year
  Sex: Female

DRUGS (13)
  1. PROGRAF [Suspect]
     Indication: PROPHYLAXIS AGAINST GRAFT VERSUS HOST DISEASE
     Dosage: UNK
     Route: 065
  2. PROGRAF [Suspect]
     Indication: IMMUNOSUPPRESSANT DRUG THERAPY
     Dosage: UNK
     Route: 065
  3. PROGRAF [Suspect]
     Indication: GRAFT VERSUS HOST DISEASE IN INTESTINE
  4. METHOTREXATE [Concomitant]
     Indication: PROPHYLAXIS AGAINST GRAFT VERSUS HOST DISEASE
     Dosage: 10 mg/m2, Unknown/D
     Route: 065
  5. METHOTREXATE [Concomitant]
     Dosage: 7 mg/m2, Unknown/D
     Route: 065
  6. CICLOSPORIN [Concomitant]
     Indication: IMMUNOSUPPRESSANT DRUG THERAPY
     Route: 041
  7. PREDNISOLONE [Concomitant]
     Indication: CHEMOTHERAPY
     Dosage: UNK
     Route: 065
  8. PREDNISOLONE [Concomitant]
     Indication: GRAFT VERSUS HOST DISEASE IN INTESTINE
     Dosage: 1 mg/kg, Unknown/D
     Route: 065
  9. GLIVEC [Concomitant]
     Indication: ACUTE LYMPHOCYTIC LEUKAEMIA
     Route: 048
  10. GLIVEC [Concomitant]
     Indication: CHROMOSOME ANALYSIS ABNORMAL
     Route: 048
  11. GLIVEC [Concomitant]
     Route: 048
  12. SPRYCEL [Concomitant]
     Route: 048
  13. TASIGNA [Concomitant]
     Route: 048

REACTIONS (5)
  - Drug ineffective [Unknown]
  - Acute graft versus host disease in intestine [Fatal]
  - Acute graft versus host disease in skin [Unknown]
  - Septic shock [Fatal]
  - Renal disorder [Unknown]
